FAERS Safety Report 6369300-2 (Version None)
Quarter: 2009Q3

REPORT INFORMATION
  Report Type: 
  Country: None (occurrence: None)
  Receive Date: 20090916
  Receipt Date: 20090903
  Transmission Date: 20100115
  Serious: Yes (Other)
  Sender: FDA-Public Use
  Company Number: 2009AP003588

PATIENT
  Sex: Male

DRUGS (2)
  1. RISPERIDONE [Suspect]
  2. ATOXOMOXETINE (ATOXOMOXETINE) [Suspect]

REACTIONS (2)
  - ERECTION INCREASED [None]
  - SEXUAL DYSFUNCTION [None]
